FAERS Safety Report 15775999 (Version 1)
Quarter: 2018Q4

REPORT INFORMATION
  Report Type: Spontaneous
  Country: CN (occurrence: CN)
  Receive Date: 20181231
  Receipt Date: 20181231
  Transmission Date: 20190205
  Serious: Yes (Other)
  Sender: FDA-Public Use
  Company Number: CN-ROCHE-2235648

PATIENT
  Age: 49 Year
  Sex: Female

DRUGS (16)
  1. BEVACIZUMAB. [Suspect]
     Active Substance: BEVACIZUMAB
     Route: 042
     Dates: start: 20170301
  2. FOLINIC ACID [Concomitant]
     Active Substance: LEUCOVORIN
     Indication: PELVIC NEOPLASM
  3. FLUOROURACIL. [Concomitant]
     Active Substance: FLUOROURACIL
     Indication: COLON CANCER
     Route: 065
     Dates: start: 20150308, end: 20150721
  4. FLUOROURACIL. [Concomitant]
     Active Substance: FLUOROURACIL
     Indication: ABDOMINAL NEOPLASM
     Route: 065
     Dates: start: 20150924
  5. OXALIPLATIN. [Concomitant]
     Active Substance: OXALIPLATIN
     Indication: PELVIC NEOPLASM
  6. IRINOTECAN [Concomitant]
     Active Substance: IRINOTECAN
     Indication: ABDOMINAL NEOPLASM
  7. FOLINIC ACID [Concomitant]
     Active Substance: LEUCOVORIN
     Indication: ABDOMINAL NEOPLASM
     Route: 065
     Dates: start: 20150924
  8. FLUOROURACIL. [Concomitant]
     Active Substance: FLUOROURACIL
     Indication: PELVIC NEOPLASM
     Route: 065
     Dates: start: 20170301
  9. BEVACIZUMAB. [Suspect]
     Active Substance: BEVACIZUMAB
     Indication: COLON CANCER
     Route: 042
     Dates: start: 20150308, end: 20150721
  10. BEVACIZUMAB. [Suspect]
     Active Substance: BEVACIZUMAB
     Indication: ABDOMINAL NEOPLASM
     Route: 042
     Dates: start: 20150924
  11. OXALIPLATIN. [Concomitant]
     Active Substance: OXALIPLATIN
     Indication: ABDOMINAL NEOPLASM
  12. IRINOTECAN [Concomitant]
     Active Substance: IRINOTECAN
     Indication: COLON CANCER
     Route: 065
     Dates: start: 20150924
  13. IRINOTECAN [Concomitant]
     Active Substance: IRINOTECAN
     Indication: PELVIC NEOPLASM
  14. BEVACIZUMAB. [Suspect]
     Active Substance: BEVACIZUMAB
     Indication: PELVIC NEOPLASM
     Route: 042
     Dates: start: 20160713
  15. OXALIPLATIN. [Concomitant]
     Active Substance: OXALIPLATIN
     Indication: COLON CANCER
     Route: 065
     Dates: start: 20150308, end: 20150721
  16. FOLINIC ACID [Concomitant]
     Active Substance: LEUCOVORIN
     Indication: COLON CANCER
     Route: 065
     Dates: start: 20150308, end: 20150609

REACTIONS (4)
  - Bone marrow failure [Unknown]
  - Gastrointestinal disorder [Unknown]
  - Nervous system disorder [Unknown]
  - Peripheral nerve injury [Unknown]
